FAERS Safety Report 14833652 (Version 1)
Quarter: 2018Q2

REPORT INFORMATION
  Report Type: Spontaneous
  Country: US (occurrence: US)
  Receive Date: 20180411
  Receipt Date: 20180411
  Transmission Date: 20180711
  Serious: Yes (Hospitalization)
  Sender: FDA-Public Use
  Company Number: None

PATIENT
  Age: 53 Year
  Sex: Male
  Weight: 112.95 kg

DRUGS (10)
  1. OXYCODONE WITH ACETAMINOPHEN 7.5/325MG TABS [Concomitant]
     Dates: start: 20180404
  2. LISINOPRIL 10MG TAB [Concomitant]
     Active Substance: LISINOPRIL
     Dates: start: 20180404
  3. TRADJENTA 5MG TAB [Concomitant]
     Dates: start: 20180404
  4. AMLODIPINE/BENAZEPRIL 5MG-10MG TAB [Concomitant]
     Dates: start: 20180404
  5. FENOFIBRATE 145MG TAB [Concomitant]
     Active Substance: FENOFIBRATE
     Dates: start: 20180404
  6. GABAPENTIN 600MG TAB [Concomitant]
     Dates: start: 20180404
  7. GAVILAX POWDER [Concomitant]
     Dates: start: 20180404
  8. DAPTOMYCIN. [Suspect]
     Active Substance: DAPTOMYCIN
     Indication: STAPHYLOCOCCAL INFECTION
     Route: 041
     Dates: start: 20180404, end: 20180409
  9. LANTUS [Concomitant]
     Active Substance: INSULIN GLARGINE
     Dates: start: 20180404
  10. METFORMIN 500MG TAB [Concomitant]
     Dates: start: 20180404

REACTIONS (4)
  - Nausea [None]
  - Vomiting [None]
  - Pruritus [None]
  - Chills [None]

NARRATIVE: CASE EVENT DATE: 20180409
